FAERS Safety Report 6925661-4 (Version None)
Quarter: 2010Q3

REPORT INFORMATION
  Report Type: 
  Country: None (occurrence: None)
  Receive Date: 20100813
  Receipt Date: 20100813
  Transmission Date: 20110219
  Serious: No
  Sender: FDA-Public Use
  Company Number: None

PATIENT

DRUGS (1)
  1. METHAMPHETAMINE [Suspect]
     Indication: SLEEP DISORDER

REACTIONS (4)
  - CONDITION AGGRAVATED [None]
  - NARCOLEPSY [None]
  - PRODUCT SUBSTITUTION ISSUE [None]
  - TABLET ISSUE [None]
